FAERS Safety Report 10026163 (Version 1)
Quarter: 2014Q1

REPORT INFORMATION
  Report Type: Spontaneous
  Country: US (occurrence: US)
  Receive Date: 20140320
  Receipt Date: 20140320
  Transmission Date: 20141002
  Serious: No
  Sender: FDA-Public Use
  Company Number: US-ALLERGAN-1319363US

PATIENT
  Age: 59 Year
  Sex: Female

DRUGS (2)
  1. LUMIGAN 0.01% [Suspect]
     Indication: GLAUCOMA
     Dosage: 2 GTT, QHS
     Route: 047
     Dates: start: 2007
  2. DORZOLAMIDE HCI-TIMOLOL MALEATE [Concomitant]
     Indication: GLAUCOMA
     Dosage: 2 GTT, BID
     Route: 047

REACTIONS (4)
  - Eyelid cyst [Not Recovered/Not Resolved]
  - Eyelid cyst [Not Recovered/Not Resolved]
  - Eyelid cyst [Recovered/Resolved]
  - Eyelid cyst [Recovered/Resolved]
